FAERS Safety Report 13556292 (Version 1)
Quarter: 2017Q2

REPORT INFORMATION
  Report Type: Spontaneous
  Country: US (occurrence: US)
  Receive Date: 20170517
  Receipt Date: 20170517
  Transmission Date: 20170830
  Serious: No
  Sender: FDA-Public Use
  Company Number: US-SA-2017SA008724

PATIENT
  Age: 60 Year
  Sex: Male
  Weight: 301 kg

DRUGS (17)
  1. ESCITALOPRAM [Concomitant]
     Active Substance: ESCITALOPRAM OXALATE
     Dates: start: 20161206
  2. BACITRACIN. [Concomitant]
     Active Substance: BACITRACIN
     Dosage: OPHTH
     Dates: start: 20161213
  3. TYLENOL [Concomitant]
     Active Substance: ACETAMINOPHEN
  4. LOXAPINE. [Concomitant]
     Active Substance: LOXAPINE
     Dates: start: 20161212
  5. VITAMINS NOS [Concomitant]
     Active Substance: VITAMINS
  6. DICLOFENAC SODIUM. [Concomitant]
     Active Substance: DICLOFENAC SODIUM
     Dosage: GEL
     Dates: start: 20161229
  7. TAMSULOSIN [Concomitant]
     Active Substance: TAMSULOSIN
  8. HUMALOG [Concomitant]
     Active Substance: INSULIN LISPRO
     Dates: start: 20161207
  9. BREO ELLIPTA [Concomitant]
     Active Substance: FLUTICASONE FUROATE\VILANTEROL TRIFENATATE
     Dates: start: 20161215
  10. TOUJEO [Suspect]
     Active Substance: INSULIN GLARGINE
     Indication: TYPE 2 DIABETES MELLITUS
     Route: 065
     Dates: start: 201603
  11. SOLOSTAR [Concomitant]
     Active Substance: DEVICE
     Dates: start: 2016
  12. WELCHOL [Concomitant]
     Active Substance: COLESEVELAM HYDROCHLORIDE
     Dates: start: 20161215
  13. POLYETHYLENE GLYCOL [Concomitant]
     Active Substance: POLYETHYLENE GLYCOLS
     Dates: start: 20161215
  14. BENZOTROPINE [Concomitant]
     Active Substance: BENZTROPINE
     Dates: start: 20161219
  15. ATORVASTATIN [Concomitant]
     Active Substance: ATORVASTATIN
     Dates: start: 20161228
  16. FML [Concomitant]
     Active Substance: FLUOROMETHOLONE
     Dosage: OINTMENT
  17. PREDNISOLONE. [Concomitant]
     Active Substance: PREDNISOLONE
     Dates: start: 20161202

REACTIONS (3)
  - Blood glucose decreased [Not Recovered/Not Resolved]
  - Blood glucose increased [Not Recovered/Not Resolved]
  - Off label use [Unknown]
